FAERS Safety Report 14240131 (Version 1)
Quarter: 2017Q4

REPORT INFORMATION
  Report Type: Spontaneous
  Country: US (occurrence: US)
  Receive Date: 20171129
  Receipt Date: 20171129
  Transmission Date: 20180321
  Serious: Yes (Death, Life-Threatening, Hospitalization, Disabling, Other)
  Sender: FDA-Public Use
  Company Number: None

PATIENT
  Sex: Female
  Weight: 54 kg

DRUGS (4)
  1. VITAMIN C WITH ZINC [Concomitant]
     Active Substance: ASCORBIC ACID\ZINC
  2. HARVONI [Suspect]
     Active Substance: LEDIPASVIR\SOFOSBUVIR
     Indication: HEPATITIS C
     Dosage: ?          QUANTITY:85 TABLET(S);?
     Route: 048
     Dates: start: 20170120, end: 20170415
  3. CLARITIN [Concomitant]
     Active Substance: LORATADINE
  4. MULTI-VITAMIN FOR WOMEN OVER 50 [Concomitant]

REACTIONS (6)
  - Hepatic failure [None]
  - Asthenia [None]
  - Hepatic function abnormal [None]
  - Hepatitis B [None]
  - Pain [None]
  - Abdominal pain upper [None]

NARRATIVE: CASE EVENT DATE: 20170407
